FAERS Safety Report 4920362-6 (Version None)
Quarter: 2006Q1

REPORT INFORMATION
  Report Type: 
  Country: None (occurrence: None)
  Receive Date: 20060223
  Receipt Date: 20050920
  Transmission Date: 20060701
  Serious: Yes (Hospitalization)
  Sender: FDA-Public Use
  Company Number: US-MERCK-0509USA03118

PATIENT
  Age: 53 Year
  Sex: Male
  Weight: 89 kg

DRUGS (6)
  1. VIOXX [Suspect]
     Indication: ARTHRITIS
     Route: 048
     Dates: start: 20000101, end: 20040807
  2. KLOR-CON [Concomitant]
     Route: 065
  3. VICODIN [Concomitant]
     Route: 065
  4. BENICAR [Concomitant]
     Route: 065
     Dates: start: 20040101
  5. LOTREL [Concomitant]
     Route: 065
     Dates: start: 20010101, end: 20050506
  6. EXTENDRYL [Concomitant]
     Route: 065

REACTIONS (8)
  - ARTERIAL STENOSIS [None]
  - BARRETT'S OESOPHAGUS [None]
  - CHEST PAIN [None]
  - DEPRESSION [None]
  - GASTROOESOPHAGEAL REFLUX DISEASE [None]
  - HELICOBACTER PYLORI IDENTIFICATION TEST POSITIVE [None]
  - HYPERTENSION [None]
  - MYOCARDIAL INFARCTION [None]
